FAERS Safety Report 8092518-8 (Version None)
Quarter: 2012Q1

REPORT INFORMATION
  Report Type: 
  Country: None (occurrence: None)
  Receive Date: 20120128
  Receipt Date: 20110826
  Transmission Date: 20120608
  Serious: No
  Sender: FDA-Public Use
  Company Number: US-ABBOTT-11P-163-0849814-00

PATIENT
  Age: 50 Year
  Sex: Male

DRUGS (8)
  1. BENADRYL [Concomitant]
     Indication: PRODUCT USED FOR UNKNOWN INDICATION
     Dosage: 25 MG - TWO TABLETS TWICE DAILY
  2. PERCOCET [Concomitant]
     Indication: PAIN
  3. CELEBREX [Concomitant]
     Indication: RHEUMATOID ARTHRITIS
  4. FOLIC ACID [Concomitant]
     Indication: PRODUCT USED FOR UNKNOWN INDICATION
     Dosage: 800 MCG - TWO TABLETS TWICE DAILY
  5. HUMIRA [Suspect]
     Indication: CROHN'S DISEASE
     Dosage: LOADING DOSE
     Dates: start: 20110826
  6. POTASSIUM [Concomitant]
     Indication: MUSCLE SPASMS
     Dosage: DAILY
  7. COLESTIPOL HYDROCHLORIDE [Concomitant]
     Indication: DIARRHOEA
     Dosage: 1 GM - TWO TABLETS TWICE DAILY
  8. PROTONIX [Concomitant]
     Indication: PRODUCT USED FOR UNKNOWN INDICATION

REACTIONS (2)
  - LETHARGY [None]
  - FEELING DRUNK [None]
